FAERS Safety Report 4924117-8 (Version None)
Quarter: 2006Q1

REPORT INFORMATION
  Report Type: 
  Country: None (occurrence: None)
  Receive Date: 20060227
  Receipt Date: 20051116
  Transmission Date: 20060701
  Serious: No
  Sender: FDA-Public Use
  Company Number: US-GLAXOSMITHKLINE-A0582574A

PATIENT
  Age: 20 Week

DRUGS (4)
  1. WELLBUTRIN XL [Suspect]
     Indication: DEPRESSION
     Dosage: 300MG PER DAY
  2. VITAMIN B COMPLEX CAP [Concomitant]
  3. ASCORBIC ACID [Concomitant]
  4. COD LIVER OIL [Concomitant]

REACTIONS (2)
  - DRUG EXPOSURE VIA BREAST MILK [None]
  - PAINFUL RESPONSE TO NORMAL STIMULI [None]
